FAERS Safety Report 17494072 (Version 1)
Quarter: 2020Q1

REPORT INFORMATION
  Report Type: Spontaneous
  Country: US (occurrence: US)
  Receive Date: 20200304
  Receipt Date: 20200304
  Transmission Date: 20200409
  Serious: Yes (Death, Hospitalization)
  Sender: FDA-Public Use
  Company Number: US-TEVA-2020-US-1193380

PATIENT
  Age: 79 Year
  Sex: Female

DRUGS (1)
  1. METHOTREXATE. [Suspect]
     Active Substance: METHOTREXATE
     Dosage: 15 MILLIGRAM DAILY; ACCIDENTALLY INGESTED 6 TABLETS OF METHOTREXATE 2.5MG A DAY FOR 4 DAYS
     Route: 048

REACTIONS (16)
  - Loss of personal independence in daily activities [Fatal]
  - Lethargy [Fatal]
  - Vomiting [Fatal]
  - Generalised oedema [Fatal]
  - Accidental overdose [Unknown]
  - Diarrhoea [Fatal]
  - Mouth haemorrhage [Fatal]
  - Dyspnoea [Fatal]
  - Blister [Fatal]
  - Confusional state [Fatal]
  - Toxicity to various agents [Fatal]
  - Somnolence [Fatal]
  - Haemorrhage [Fatal]
  - Asthenia [Fatal]
  - Skin exfoliation [Fatal]
  - Accidental exposure to product [Unknown]
